FAERS Safety Report 6272838-X (Version None)
Quarter: 2009Q3

REPORT INFORMATION
  Report Type: 
  Country: None (occurrence: None)
  Receive Date: 20090717
  Receipt Date: 20090708
  Transmission Date: 20100115
  Serious: Yes (Hospitalization)
  Sender: FDA-Public Use
  Company Number: NZ-ASTRAZENECA-2009SE04277

PATIENT
  Age: 27907 Day
  Sex: Female

DRUGS (2)
  1. PRILOSEC [Suspect]
     Route: 048
     Dates: start: 20000324, end: 20000501
  2. FLUCLOXACILLIN [Concomitant]
     Route: 048
     Dates: start: 20000322

REACTIONS (3)
  - NECROSIS ISCHAEMIC [None]
  - SKIN ULCER [None]
  - VASCULITIS [None]
